FAERS Safety Report 8437686-0 (Version None)
Quarter: 2012Q2

REPORT INFORMATION
  Report Type: 
  Country: None (occurrence: None)
  Receive Date: 20120614
  Receipt Date: 20120504
  Transmission Date: 20120825
  Serious: No
  Sender: FDA-Public Use
  Company Number: US-AMGEN-USASP2012028584

PATIENT
  Sex: Female

DRUGS (3)
  1. RESTASIS [Concomitant]
  2. METOPROLOL TARTRATE [Concomitant]
  3. PROLIA [Suspect]
     Indication: OSTEOPOROSIS POSTMENOPAUSAL
     Dosage: 60 MG, Q6MO
     Dates: start: 20120312

REACTIONS (7)
  - ARTHRALGIA [None]
  - PAIN IN EXTREMITY [None]
  - BACK PAIN [None]
  - DECREASED ACTIVITY [None]
  - MYALGIA [None]
  - DYSSTASIA [None]
  - RASH [None]
